FAERS Safety Report 17132835 (Version 5)
Quarter: 2020Q1

REPORT INFORMATION
  Report Type: Report from Study
  Country: KR (occurrence: KR)
  Receive Date: 20191210
  Receipt Date: 20200129
  Transmission Date: 20200409
  Serious: Yes (Death, Hospitalization)
  Sender: FDA-Public Use
  Company Number: KR-ROCHE-2487155

PATIENT
  Age: 71 Year
  Sex: Female
  Weight: 55.1 kg

DRUGS (2)
  1. HM 95573 [Suspect]
     Active Substance: INVESTIGATIONAL PRODUCT
     Indication: METASTATIC NEOPLASM
     Dosage: MOST RECENT DOSE OF HM95573 PRIOR TO EVENT ONSET: 18/NOV/2019
     Route: 048
     Dates: start: 20191024
  2. COBIMETINIB. [Suspect]
     Active Substance: COBIMETINIB
     Indication: METASTATIC NEOPLASM
     Dosage: MOST RECENT DOSE OF COBIMETINIB PRIOR TO EVENT ONSET: 11/NOV/2019
     Route: 048
     Dates: start: 20191024

REACTIONS (2)
  - Acute kidney injury [Fatal]
  - Ascites [Recovered/Resolved]

NARRATIVE: CASE EVENT DATE: 20191118
